FAERS Safety Report 8334720-3 (Version None)
Quarter: 2012Q2

REPORT INFORMATION
  Report Type: 
  Country: None (occurrence: None)
  Receive Date: 20120503
  Receipt Date: 20120423
  Transmission Date: 20120825
  Serious: Yes (Hospitalization)
  Sender: FDA-Public Use
  Company Number: DE-ROCHE-1064807

PATIENT
  Sex: Male

DRUGS (3)
  1. LUCENTIS [Suspect]
     Indication: AGE-RELATED MACULAR DEGENERATION
     Route: 050
     Dates: start: 20111201
  2. LUCENTIS [Suspect]
     Route: 050
     Dates: start: 20120101
  3. LUCENTIS [Suspect]
     Route: 050
     Dates: start: 20120301

REACTIONS (5)
  - CORNEAL EROSION [None]
  - CATARACT [None]
  - ENDOPHTHALMITIS [None]
  - GASTROINTESTINAL INFECTION [None]
  - RETINAL DETACHMENT [None]
